FAERS Safety Report 13670304 (Version 1)
Quarter: 2017Q2

REPORT INFORMATION
  Report Type: Report from Study
  Country: CA (occurrence: CA)
  Receive Date: 20170620
  Receipt Date: 20170620
  Transmission Date: 20170830
  Serious: Yes (Other)
  Sender: FDA-Public Use
  Company Number: CA-REGENERON PHARMACEUTICALS, INC.-2017-17396

PATIENT

DRUGS (1)
  1. EYLEA [Suspect]
     Active Substance: AFLIBERCEPT
     Indication: RETINAL VEIN OCCLUSION
     Dosage: UNK
     Dates: start: 20170511

REACTIONS (6)
  - Hallucination [Unknown]
  - Drug dose omission [Unknown]
  - Diarrhoea [Unknown]
  - Malaise [Unknown]
  - Suicidal ideation [Unknown]
  - Unevaluable event [Unknown]
